FAERS Safety Report 24251833 (Version 7)
Quarter: 2025Q3

REPORT INFORMATION
  Report Type: Spontaneous
  Country: US (occurrence: US)
  Receive Date: 20240827
  Receipt Date: 20250806
  Transmission Date: 20251020
  Serious: Yes (Other)
  Sender: CSL BEHRING
  Company Number: US-BEH-2024177464

PATIENT
  Age: 18 Year
  Sex: Male

DRUGS (8)
  1. HUMATE-P [Suspect]
     Active Substance: HUMAN COAGULATION FACTOR VIII/VON WILLEBRAND FACTOR COMPLEX
     Indication: Von Willebrand^s disease
     Dosage: 6987 IU, BIW
     Route: 042
     Dates: start: 201207
  2. HUMATE-P [Suspect]
     Active Substance: HUMAN COAGULATION FACTOR VIII/VON WILLEBRAND FACTOR COMPLEX
     Indication: Prophylaxis
     Dosage: 10525 IU, QW
     Route: 042
     Dates: start: 201207
  3. HUMATE-P [Suspect]
     Active Substance: HUMAN COAGULATION FACTOR VIII/VON WILLEBRAND FACTOR COMPLEX
     Route: 042
     Dates: start: 201207
  4. HUMATE-P [Suspect]
     Active Substance: HUMAN COAGULATION FACTOR VIII/VON WILLEBRAND FACTOR COMPLEX
     Dosage: 7603 IU BIW, (STRENGTH: 2400)
     Route: 042
     Dates: start: 201207
  5. HUMATE-P [Suspect]
     Active Substance: HUMAN COAGULATION FACTOR VIII/VON WILLEBRAND FACTOR COMPLEX
     Dosage: 11450 IU QW, (STRENGTH: 2400)
     Route: 042
     Dates: start: 201207
  6. HUMATE-P [Suspect]
     Active Substance: HUMAN COAGULATION FACTOR VIII/VON WILLEBRAND FACTOR COMPLEX
     Dosage: 7603 IU BIW, (STRENGTH: 1200)
     Route: 042
     Dates: start: 201207
  7. COVID-19 vaccine [Concomitant]
     Dates: start: 20241013
  8. SALINE [Concomitant]
     Active Substance: SODIUM CHLORIDE

REACTIONS (13)
  - Haemarthrosis [Unknown]
  - Haemarthrosis [Recovered/Resolved]
  - Mouth haemorrhage [Recovered/Resolved]
  - Fall [Unknown]
  - Epistaxis [Recovered/Resolved]
  - Epistaxis [Recovered/Resolved]
  - Epistaxis [Recovered/Resolved]
  - Epistaxis [Recovered/Resolved]
  - Epistaxis [Recovered/Resolved]
  - Epistaxis [Unknown]
  - Epistaxis [Unknown]
  - Epistaxis [Unknown]
  - Soft tissue haemorrhage [Unknown]

NARRATIVE: CASE EVENT DATE: 20240726
